FAERS Safety Report 22604397 (Version 1)
Quarter: 2023Q2

REPORT INFORMATION
  Report Type: Spontaneous
  Country: CN (occurrence: None)
  Receive Date: 20230615
  Receipt Date: 20230615
  Transmission Date: 20230722
  Serious: Yes (Other)
  Sender: FDA-Public Use
  Company Number: CN-ROCHE-3363735

PATIENT

DRUGS (3)
  1. AVASTIN [Suspect]
     Active Substance: BEVACIZUMAB
     Indication: Ovarian cancer
     Route: 065
  2. DURVALUMAB [Concomitant]
     Active Substance: DURVALUMAB
     Indication: Ovarian cancer
  3. OLAPARIB [Concomitant]
     Active Substance: OLAPARIB
     Indication: Ovarian cancer

REACTIONS (15)
  - Nausea [Unknown]
  - Anaemia [Unknown]
  - Neutrophil count decreased [Unknown]
  - Fatigue [Unknown]
  - Asthenia [Unknown]
  - Arthralgia [Unknown]
  - Constipation [Unknown]
  - Diarrhoea [Unknown]
  - Platelet count decreased [Unknown]
  - Hypertension [Unknown]
  - Vomiting [Unknown]
  - White blood cell count decreased [Unknown]
  - Headache [Unknown]
  - Abdominal pain [Unknown]
  - Hypothyroidism [Unknown]
